FAERS Safety Report 5819656-1 (Version None)
Quarter: 2008Q3

REPORT INFORMATION
  Report Type: 
  Country: None (occurrence: None)
  Receive Date: 20080723
  Receipt Date: 20080711
  Transmission Date: 20090109
  Serious: Yes (Other)
  Sender: FDA-Public Use
  Company Number: BE-PFIZER INC-2008060377

PATIENT
  Sex: Female

DRUGS (3)
  1. CHANTIX [Suspect]
     Route: 048
  2. SPIRIVA [Concomitant]
  3. EMCONCOR [Concomitant]

REACTIONS (1)
  - DEPRESSION [None]
